FAERS Safety Report 10570227 (Version 1)
Quarter: 2014Q4

REPORT INFORMATION
  Report Type: Spontaneous
  Country: US (occurrence: US)
  Receive Date: 20141107
  Receipt Date: 20141107
  Transmission Date: 20150529
  Serious: Yes (Death, Other)
  Sender: FDA-Public Use
  Company Number: PHHY2014US143617

PATIENT
  Age: 30 Year
  Sex: Female

DRUGS (5)
  1. CLONAZEPAM. [Suspect]
     Active Substance: CLONAZEPAM
     Indication: MYOCLONIC EPILEPSY
     Route: 065
  2. VALPROIC ACID. [Suspect]
     Active Substance: VALPROIC ACID
     Indication: MYOCLONIC EPILEPSY
     Route: 065
  3. OLANZAPINE. [Suspect]
     Active Substance: OLANZAPINE
     Indication: COMPLEX PARTIAL SEIZURES
     Route: 065
  4. LAMOTRIGINE. [Suspect]
     Active Substance: LAMOTRIGINE
     Indication: COMPLEX PARTIAL SEIZURES
     Route: 065
  5. OXCARBAZEPINE. [Suspect]
     Active Substance: OXCARBAZEPINE
     Indication: COMPLEX PARTIAL SEIZURES
     Route: 065

REACTIONS (13)
  - Salivary hypersecretion [Unknown]
  - Hypothyroidism [Unknown]
  - Complex partial seizures [Unknown]
  - Drug ineffective [Unknown]
  - Tooth disorder [Unknown]
  - Gingival disorder [Unknown]
  - Therapeutic response decreased [Unknown]
  - Dental caries [Unknown]
  - Generalised tonic-clonic seizure [Fatal]
  - Congenital jaw malformation [Unknown]
  - Tooth loss [Unknown]
  - Myoclonic epilepsy [Unknown]
  - Noninfective gingivitis [Unknown]
